FAERS Safety Report 15843806 (Version 1)
Quarter: 2019Q1

REPORT INFORMATION
  Report Type: Spontaneous
  Country: JP (occurrence: JP)
  Receive Date: 20190118
  Receipt Date: 20190118
  Transmission Date: 20190417
  Serious: Yes (Death)
  Sender: FDA-Public Use
  Company Number: JP-PURDUE-GBR-2019-0063496

PATIENT
  Sex: Male

DRUGS (1)
  1. OXIFAST [Suspect]
     Active Substance: OXYCODONE
     Indication: NEOPLASM MALIGNANT
     Dosage: UNK
     Route: 041
     Dates: start: 20181213, end: 20181218

REACTIONS (1)
  - Neoplasm malignant [Fatal]
